FAERS Safety Report 22366492 (Version 1)
Quarter: 2023Q2

REPORT INFORMATION
  Report Type: Spontaneous
  Country: GB (occurrence: GB)
  Receive Date: 20230525
  Receipt Date: 20230525
  Transmission Date: 20230722
  Serious: Yes (Other)
  Sender: FDA-Public Use
  Company Number: GB-HBP-2023GB028872

PATIENT
  Age: 31 Year
  Sex: Female

DRUGS (8)
  1. PALONOSETRON HYDROCHLORIDE [Suspect]
     Active Substance: PALONOSETRON HYDROCHLORIDE
     Indication: Supportive care
     Dosage: UNK, UNKNOWN
     Route: 065
  2. ETOPOSIDE [Suspect]
     Active Substance: ETOPOSIDE
     Indication: Teratoma
     Dosage: 165 MILLIGRAM/SQ. METER, ON DAYS 1,2 AND 3
     Route: 065
  3. CISPLATIN [Suspect]
     Active Substance: CISPLATIN
     Indication: Teratoma
     Dosage: 50 MILLIGRAM/SQ. METER, ON DAYS 1,2 AND 3
  4. PACLITAXEL [Suspect]
     Active Substance: PACLITAXEL
     Indication: Teratoma
     Dosage: 175 MILLIGRAM/SQ. METER, UNKNOWN
  5. DEXAMETHASONE [Suspect]
     Active Substance: DEXAMETHASONE
     Indication: Supportive care
     Dosage: UNK, UNKNOWN
  6. METOCLOPRAMIDE HYDROCHLORIDE [Suspect]
     Active Substance: METOCLOPRAMIDE HYDROCHLORIDE
     Indication: Supportive care
     Dosage: UNK, UNKNOWN
  7. CYCLIZINE [Suspect]
     Active Substance: CYCLIZINE
     Indication: Supportive care
     Dosage: UNK, UNKNOWN
  8. FILGRASTIM [Suspect]
     Active Substance: FILGRASTIM
     Indication: Product used for unknown indication
     Dosage: UNK, UNKNOWN

REACTIONS (5)
  - Neuropathy peripheral [Unknown]
  - Maternal exposure during pregnancy [Unknown]
  - Off label use [Unknown]
  - Nausea [Unknown]
  - Constipation [Unknown]
